FAERS Safety Report 7373590-7 (Version None)
Quarter: 2011Q1

REPORT INFORMATION
  Report Type: 
  Country: None (occurrence: None)
  Receive Date: 20110314
  Receipt Date: 20110301
  Transmission Date: 20110831
  Serious: Yes (Other)
  Sender: FDA-Public Use
  Company Number: FK201100380

PATIENT
  Age: 46 Year
  Sex: Male

DRUGS (2)
  1. FLUOROURACIL [Suspect]
     Indication: ADENOCARCINOMA
     Dosage: 825 MG (825 MG,1 IN 1 D)
  2. LEUCOVIN (CALCIUM FLINATE) (CALCIUM FOLINATE) [Concomitant]

REACTIONS (8)
  - CARDIOTOXICITY [None]
  - ABDOMINAL PAIN [None]
  - VENTRICULAR TACHYCARDIA [None]
  - PULSE ABSENT [None]
  - NAUSEA [None]
  - VENTRICULAR FIBRILLATION [None]
  - EJECTION FRACTION DECREASED [None]
  - SYNCOPE [None]
